FAERS Safety Report 12194894 (Version 1)
Quarter: 2016Q1

REPORT INFORMATION
  Report Type: Spontaneous
  Country: US (occurrence: US)
  Receive Date: 20160321
  Receipt Date: 20160321
  Transmission Date: 20160526
  Serious: No
  Sender: FDA-Public Use
  Company Number: US-GLAXOSMITHKLINE-US2016GSK035611

PATIENT
  Sex: Female

DRUGS (2)
  1. ROPINIROLE PROLONGED-RELEASE TABLET [Suspect]
     Active Substance: ROPINIROLE
     Indication: RESTLESS LEGS SYNDROME
     Dosage: 3 MG, BID
  2. ROPINIROLE PROLONGED-RELEASE TABLET [Suspect]
     Active Substance: ROPINIROLE
     Dosage: 3 MG, QD

REACTIONS (6)
  - Product substitution issue [Unknown]
  - Vomiting [Unknown]
  - Nausea [Unknown]
  - General physical health deterioration [Unknown]
  - Intentional product use issue [Unknown]
  - Malaise [Unknown]
